FAERS Safety Report 23445908 (Version 1)
Quarter: 2024Q1

REPORT INFORMATION
  Report Type: Spontaneous
  Country: US (occurrence: US)
  Receive Date: 20240126
  Receipt Date: 20240126
  Transmission Date: 20240409
  Serious: Yes (Other)
  Sender: FDA-Public Use
  Company Number: US-CHEPLA-2024001062

PATIENT
  Age: 76 Year
  Sex: Male
  Weight: 68.489 kg

DRUGS (5)
  1. HYDROXYUREA [Suspect]
     Active Substance: HYDROXYUREA
     Indication: Product used for unknown indication
  2. JAKAFI [Suspect]
     Active Substance: RUXOLITINIB
     Indication: Polycythaemia vera
     Dosage: (TAKE 1 TABLET IN AM AND 2 TABLETS IN PM)?DAILY DOSE: 10 MILLIGRAM
     Route: 048
     Dates: start: 20211026
  3. JAKAFI [Suspect]
     Active Substance: RUXOLITINIB
     Indication: Polycythaemia vera
     Dosage: (5MG IN THE MORNING, 10MG IN THE EVENING)?DAILY DOSE: 15 MILLIGRAM
     Route: 048
     Dates: start: 20211026
  4. JAKAFI [Suspect]
     Active Substance: RUXOLITINIB
     Indication: Polycythaemia vera
     Dosage: (5MG IN THE MORNING, 10MG IN THE EVENING)?DAILY DOSE: 15 MILLIGRAM
     Route: 048
     Dates: start: 20211026
  5. JAKAFI [Suspect]
     Active Substance: RUXOLITINIB
     Indication: Polycythaemia vera
     Dosage: 5MG IN THE MORNING (AM) AND 10MG IN THE EVENING (PM). ?DAILY DOSE: 15 MILLIGRAM
     Route: 048
     Dates: start: 202206

REACTIONS (10)
  - Testis cancer [Unknown]
  - Basal cell carcinoma [Unknown]
  - Peripheral artery stenosis [Unknown]
  - Bone cancer [Unknown]
  - Hypersensitivity [Unknown]
  - Fatigue [Unknown]
  - Red blood cell count increased [Unknown]
  - Pruritus [Unknown]
  - Weight increased [Unknown]
  - Hepatic enzyme increased [Unknown]
